FAERS Safety Report 11334415 (Version 1)
Quarter: 2015Q3

REPORT INFORMATION
  Report Type: Other
  Country: IL (occurrence: IL)
  Receive Date: 20150804
  Receipt Date: 20150804
  Transmission Date: 20151125
  Serious: Yes (Hospitalization)
  Sender: FDA-Public Use
  Company Number: IL-DEXPHARM-20151010

PATIENT
  Age: 79 Year
  Sex: Male

DRUGS (7)
  1. METHOTREXATE [Interacting]
     Active Substance: METHOTREXATE
     Indication: POLYMYALGIA RHEUMATICA
  2. NIFEDIPINE. [Interacting]
     Active Substance: NIFEDIPINE
  3. METOPROLOL [Concomitant]
     Active Substance: METOPROLOL
  4. METFORMIN [Concomitant]
     Active Substance: METFORMIN HYDROCHLORIDE
  5. OMEPRAZOLE. [Interacting]
     Active Substance: OMEPRAZOLE
  6. FUROSEMIDE. [Concomitant]
     Active Substance: FUROSEMIDE
  7. PREDNISONE. [Suspect]
     Active Substance: PREDNISONE

REACTIONS (2)
  - Drug interaction [Recovered/Resolved]
  - Pneumonitis [Recovered/Resolved]
